FAERS Safety Report 23364734 (Version 1)
Quarter: 2024Q1

REPORT INFORMATION
  Report Type: Spontaneous
  Country: MX (occurrence: MX)
  Receive Date: 20240104
  Receipt Date: 20240104
  Transmission Date: 20240410
  Serious: Yes (Other)
  Sender: FDA-Public Use
  Company Number: MX-002147023-NVSC2023MX276853

PATIENT
  Age: 75 Year
  Sex: Female

DRUGS (1)
  1. EXELON [Suspect]
     Active Substance: RIVASTIGMINE TARTRATE
     Indication: Product used for unknown indication
     Dosage: 18 MG, QD, PATCH 10 (CM2) (1 DOSAGE FORM, QD)
     Route: 065
     Dates: start: 20221028, end: 20231220

REACTIONS (2)
  - Terminal state [Not Recovered/Not Resolved]
  - Disease complication [Not Recovered/Not Resolved]
